FAERS Safety Report 7648219-0 (Version None)
Quarter: 2011Q3

REPORT INFORMATION
  Report Type: 
  Country: None (occurrence: None)
  Receive Date: 20110801
  Receipt Date: 20110727
  Transmission Date: 20111222
  Serious: No
  Sender: FDA-Public Use
  Company Number: US-PFIZER INC-2011171946

PATIENT
  Sex: Male

DRUGS (3)
  1. ZOCOR [Suspect]
     Dosage: UNK
  2. LIPITOR [Suspect]
     Dosage: UNK
  3. CRESTOR [Suspect]
     Dosage: UNK

REACTIONS (5)
  - CIRCUMSTANCE OR INFORMATION CAPABLE OF LEADING TO MEDICATION ERROR [None]
  - PRURITUS [None]
  - MUSCLE SPASMS [None]
  - PAIN IN EXTREMITY [None]
  - SKIN DISCOLOURATION [None]
